FAERS Safety Report 16153506 (Version 1)
Quarter: 2019Q2

REPORT INFORMATION
  Report Type: Spontaneous
  Country: AT (occurrence: SG)
  Receive Date: 20190403
  Receipt Date: 20190403
  Transmission Date: 20190711
  Serious: Yes (Other)
  Sender: FDA-Public Use
  Company Number: AT-BAYER-2019-059653

PATIENT
  Age: 48 Year
  Sex: Female
  Weight: 108 kg

DRUGS (2)
  1. NEXAVAR [Suspect]
     Active Substance: SORAFENIB
     Indication: HEPATOCELLULAR CARCINOMA
     Dosage: 800 MG, QD
     Dates: start: 201606, end: 201702
  2. STIVARGA [Suspect]
     Active Substance: REGORAFENIB
     Indication: HEPATOCELLULAR CARCINOMA
     Dosage: 160 MG, QD, 3 WEEKS ON / 1 WEEK OFF
     Dates: start: 20170316, end: 201709

REACTIONS (15)
  - Limb injury [Not Recovered/Not Resolved]
  - Weight decreased [Recovered/Resolved]
  - Decreased appetite [None]
  - Contusion [None]
  - Hepatocellular carcinoma [Not Recovered/Not Resolved]
  - Myalgia [None]
  - Weight decreased [None]
  - Ascites [Not Recovered/Not Resolved]
  - Hepatocellular carcinoma [None]
  - Palmar-plantar erythrodysaesthesia syndrome [Recovered/Resolved]
  - Arthralgia [None]
  - Fatigue [None]
  - Nausea [None]
  - Alopecia [None]
  - Dysphonia [None]

NARRATIVE: CASE EVENT DATE: 20160608
